FAERS Safety Report 14993001 (Version 1)
Quarter: 2018Q2

REPORT INFORMATION
  Report Type: Spontaneous
  Country: DE (occurrence: DE)
  Receive Date: 20180610
  Receipt Date: 20180610
  Transmission Date: 20180711
  Serious: Yes (Hospitalization)
  Sender: FDA-Public Use
  Company Number: DE-TEVA-2018-DE-903197

PATIENT
  Age: 79 Year
  Sex: Female
  Weight: 71 kg

DRUGS (7)
  1. PANTOPRAZOL [Concomitant]
     Active Substance: PANTOPRAZOLE SODIUM
     Route: 048
  2. ACETYLSALICYLIC ACID [Concomitant]
     Active Substance: ASPIRIN
     Route: 048
  3. NIFEDIPIN [Concomitant]
     Active Substance: NIFEDIPINE
     Route: 048
  4. CLOPIDOGREL [Suspect]
     Active Substance: CLOPIDOGREL BISULFATE
     Route: 048
  5. METFORMIN [Concomitant]
     Active Substance: METFORMIN HYDROCHLORIDE
     Route: 048
  6. RAMIPRIL. [Suspect]
     Active Substance: RAMIPRIL
     Route: 048
  7. BISOPROLOL 5 MG + HCT 12,5 MG [Concomitant]
     Dosage: 5|12.5 MG
     Route: 048

REACTIONS (1)
  - Swollen tongue [Recovering/Resolving]

NARRATIVE: CASE EVENT DATE: 20151028
